FAERS Safety Report 15451232 (Version 10)
Quarter: 2018Q4

REPORT INFORMATION
  Report Type: Report from Study
  Country: GB (occurrence: GB)
  Receive Date: 20181001
  Receipt Date: 20181217
  Transmission Date: 20190204
  Serious: Yes (Hospitalization, Other)
  Sender: FDA-Public Use
  Company Number: GB-IPSEN BIOPHARMACEUTICALS, INC.-2018-05710

PATIENT
  Age: 74 Year
  Sex: Male

DRUGS (2)
  1. SOMATULINE AUTOGEL 120MG [Suspect]
     Active Substance: LANREOTIDE ACETATE
     Indication: NEUROENDOCRINE TUMOUR
  2. SOMATULINE AUTOGEL 120MG [Suspect]
     Active Substance: LANREOTIDE ACETATE
     Indication: ACROMEGALY
     Dosage: 120 MG, PRE-FILLED SYRINGE.
     Route: 058
     Dates: start: 20180403

REACTIONS (16)
  - Circulatory collapse [Unknown]
  - Fatigue [Not Recovered/Not Resolved]
  - Hot flush [Not Recovered/Not Resolved]
  - Hot flush [Recovered/Resolved]
  - Heart rate increased [Unknown]
  - Asthenia [Unknown]
  - Ill-defined disorder [Unknown]
  - Cold sweat [Unknown]
  - Inappropriate schedule of product administration [Unknown]
  - Flatulence [Not Recovered/Not Resolved]
  - Palpitations [Recovered/Resolved]
  - Abdominal pain lower [Recovered/Resolved]
  - Faeces pale [Unknown]
  - Blood pressure decreased [Unknown]
  - Weight decreased [Not Recovered/Not Resolved]
  - Flushing [Unknown]

NARRATIVE: CASE EVENT DATE: 2018
